FAERS Safety Report 6166607-9 (Version None)
Quarter: 2009Q2

REPORT INFORMATION
  Report Type: 
  Country: None (occurrence: None)
  Receive Date: 20090424
  Receipt Date: 20080725
  Transmission Date: 20091009
  Serious: No
  Sender: FDA-Public Use
  Company Number: US-ASTRAZENECA-2008UW15452

PATIENT
  Age: 30 Year
  Sex: Female
  Weight: 47.6 kg

DRUGS (12)
  1. ZOMIG [Suspect]
     Indication: MIGRAINE
     Route: 048
  2. DEPAKOTE [Concomitant]
  3. NEXIUM [Concomitant]
     Route: 048
  4. AYGESTIN [Concomitant]
  5. CLODERM [Concomitant]
  6. PREVIDET [Concomitant]
  7. INDERAL [Concomitant]
  8. ZOFRAN [Concomitant]
  9. VICODIN [Concomitant]
  10. RECLAST [Concomitant]
  11. TRAZODONE HCL [Concomitant]
  12. TEMAZEPAM [Concomitant]

REACTIONS (5)
  - ASTHENIA [None]
  - BONE PAIN [None]
  - CHEST DISCOMFORT [None]
  - PAIN IN EXTREMITY [None]
  - TEMPERATURE INTOLERANCE [None]
